FAERS Safety Report 14734177 (Version 1)
Quarter: 2018Q2

REPORT INFORMATION
  Report Type: Spontaneous
  Country: BR (occurrence: BR)
  Receive Date: 20180409
  Receipt Date: 20180409
  Transmission Date: 20180711
  Serious: Yes (Hospitalization)
  Sender: FDA-Public Use
  Company Number: PHHY2018BR061225

PATIENT
  Age: 4 Year
  Sex: Female
  Weight: 27 kg

DRUGS (1)
  1. TEGRETOL [Suspect]
     Active Substance: CARBAMAZEPINE
     Indication: SEIZURE
     Dosage: 5 ML, Q12H
     Route: 048
     Dates: start: 201608

REACTIONS (1)
  - Haemangioma [Unknown]

NARRATIVE: CASE EVENT DATE: 20161030
